FAERS Safety Report 7330721-2 (Version None)
Quarter: 2011Q1

REPORT INFORMATION
  Report Type: 
  Country: None (occurrence: None)
  Receive Date: 20110304
  Receipt Date: 20110217
  Transmission Date: 20110831
  Serious: Yes (Other)
  Sender: FDA-Public Use
  Company Number: US-BAYER-201038387NA

PATIENT
  Sex: Female
  Weight: 68.027 kg

DRUGS (4)
  1. YASMIN [Suspect]
     Indication: PRODUCT USED FOR UNKNOWN INDICATION
     Dosage: UNK
     Route: 048
  2. SERTRALINE HYDROCHLORIDE [Concomitant]
     Dosage: 100 MG, UNK
  3. OCELLA [Suspect]
     Dosage: 3 MG, UNK
     Dates: start: 20081015
  4. ZOLOFT [Concomitant]

REACTIONS (4)
  - CHOLECYSTITIS [None]
  - CHOLELITHIASIS [None]
  - ABDOMINAL DISTENSION [None]
  - PAIN [None]
